FAERS Safety Report 15813465 (Version 1)
Quarter: 2019Q1

REPORT INFORMATION
  Report Type: Spontaneous
  Country: US (occurrence: US)
  Receive Date: 20190111
  Receipt Date: 20190111
  Transmission Date: 20190417
  Serious: Yes (Other)
  Sender: FDA-Public Use
  Company Number: None

PATIENT
  Sex: Female

DRUGS (6)
  1. REPATHA [Suspect]
     Active Substance: EVOLOCUMAB
     Indication: HYPERLIPIDAEMIA
     Dosage: ?          OTHER FREQUENCY:Q 2 WEEKS;?
     Route: 058
     Dates: start: 20171006
  2. ASPIRIN, COCONUT OIL [Concomitant]
  3. ESTRADIOL, MAG OXIDE [Concomitant]
  4. MULTI-VITAMIN, SYNTHROID [Concomitant]
  5. VITAMIN D3 [Concomitant]
     Active Substance: CHOLECALCIFEROL
  6. COD LIVER OIL, CYMBALTA [Concomitant]

REACTIONS (2)
  - Salivary gland neoplasm [None]
  - Lymphadenopathy [None]
